FAERS Safety Report 23908364 (Version 1)
Quarter: 2024Q2

REPORT INFORMATION
  Report Type: Spontaneous
  Country: US (occurrence: US)
  Receive Date: 20240528
  Receipt Date: 20240528
  Transmission Date: 20240716
  Serious: No
  Sender: FDA-Public Use
  Company Number: US-AMNEAL PHARMACEUTICALS-2024-AMRX-01107

PATIENT
  Age: 91 Year
  Sex: Female
  Weight: 54.875 kg

DRUGS (6)
  1. RALOXIFENE HYDROCHLORIDE [Suspect]
     Active Substance: RALOXIFENE HYDROCHLORIDE
     Indication: Osteoporosis
     Dosage: 1 TABLETS, 1 /DAY
     Route: 048
  2. FUROSEMIDE [Concomitant]
     Active Substance: FUROSEMIDE
     Indication: Product used for unknown indication
     Dosage: 20 MG
     Route: 048
  3. CARVEDILOL [Concomitant]
     Active Substance: CARVEDILOL
     Indication: Product used for unknown indication
     Dosage: 6.25 MG 1 TABLETS, 2X/DAY
     Route: 048
  4. ROSUVASTATIN [Concomitant]
     Active Substance: ROSUVASTATIN
     Indication: Product used for unknown indication
     Dosage: 5 MG 1 TABLETS, 1X/DAY
     Route: 048
  5. EFFER K [Concomitant]
     Indication: Product used for unknown indication
     Dosage: TABLET
     Route: 048
  6. LEVOXYL [Concomitant]
     Active Substance: LEVOTHYROXINE SODIUM
     Indication: Product used for unknown indication
     Dosage: 50 MG 1 TABLET, 1X/DAY
     Route: 048

REACTIONS (2)
  - Joint swelling [Recovering/Resolving]
  - Weight increased [Recovering/Resolving]

NARRATIVE: CASE EVENT DATE: 20240101
